FAERS Safety Report 6663969-0 (Version None)
Quarter: 2010Q2

REPORT INFORMATION
  Report Type: 
  Country: None (occurrence: None)
  Receive Date: 20100401
  Receipt Date: 20100325
  Transmission Date: 20101027
  Serious: Yes (Hospitalization, Other)
  Sender: FDA-Public Use
  Company Number: US-NAPPMUNDI-USA-2010-0042345

PATIENT
  Sex: Female

DRUGS (3)
  1. OXYCONTIN [Suspect]
     Indication: PAIN
     Dosage: 80 MG, TID
  2. MORPHINE SULFATE [Suspect]
     Indication: PAIN
     Dosage: UNK
     Dates: start: 20100201
  3. DURAGESIC-100 [Suspect]
     Indication: PAIN
     Dosage: 75 MCG, UNK
     Route: 062
     Dates: start: 20100201

REACTIONS (3)
  - BONE CYST [None]
  - DRUG INEFFECTIVE [None]
  - OSTEONECROSIS [None]
